FAERS Safety Report 7610930-5 (Version None)
Quarter: 2011Q3

REPORT INFORMATION
  Report Type: 
  Country: None (occurrence: None)
  Receive Date: 20110715
  Receipt Date: 20110630
  Transmission Date: 20111222
  Serious: Yes (Hospitalization, Other)
  Sender: FDA-Public Use
  Company Number: PHHY2011JP52271

PATIENT
  Sex: Male
  Weight: 89 kg

DRUGS (13)
  1. GASMOTIN [Interacting]
     Indication: GASTROOESOPHAGEAL REFLUX DISEASE
     Dosage: 15 MG, UNK
     Route: 048
     Dates: start: 20091202, end: 20110630
  2. WARFARIN SODIUM [Interacting]
     Indication: ATRIAL FIBRILLATION
     Dosage: 4 MG, UNK
     Route: 048
     Dates: start: 20090511, end: 20110530
  3. MECOBALAMIN [Interacting]
     Indication: BACK PAIN
     Dosage: 1.5 MG, UNK
     Route: 048
     Dates: start: 20100303, end: 20110603
  4. SAIREI-TO [Interacting]
     Indication: OEDEMA
     Dosage: 8.1 G, UNK
     Route: 048
     Dates: start: 20100809, end: 20110530
  5. BISOPROLOL FUMARATE [Interacting]
     Indication: HYPERTENSION
     Dosage: 5 MG, UNK
     Route: 048
     Dates: start: 20090511, end: 20110603
  6. PIMENOL [Interacting]
     Indication: VENTRICULAR EXTRASYSTOLES
     Dosage: 100 MG, UNK
     Route: 048
     Dates: start: 20090510, end: 20110603
  7. MAGMITT [Interacting]
     Indication: CONSTIPATION
     Dosage: 500 MG, UNK
     Route: 048
     Dates: start: 20090704, end: 20110530
  8. DIOVAN [Suspect]
     Indication: HYPERTENSION
     Dosage: 160 MG, DAILY
     Route: 048
     Dates: start: 20090511, end: 20110603
  9. AMLODIPINE [Interacting]
     Indication: HYPERTENSION
     Dosage: 5 MG, UNK
     Route: 048
     Dates: start: 20090511, end: 20110603
  10. DOXAZOSIN MESYLATE [Interacting]
     Indication: HYPERTENSION
     Dosage: 2 MG, UNK
     Route: 048
     Dates: start: 20090715, end: 20110603
  11. EPINASTINE HYDROCHLORIDE [Interacting]
     Indication: SEASONAL ALLERGY
     Dosage: 20 MG, DAILY
     Route: 048
     Dates: start: 20110414, end: 20110603
  12. LANSOPRAZOLE [Interacting]
     Indication: GASTROOESOPHAGEAL REFLUX DISEASE
     Dosage: 15 MG, UNK
     Route: 048
     Dates: start: 20090511, end: 20110603
  13. MEXITIL [Interacting]
     Indication: VENTRICULAR EXTRASYSTOLES
     Dosage: 300 MG, UNK
     Route: 048
     Dates: start: 20090511, end: 20110603

REACTIONS (8)
  - PNEUMONIA [None]
  - HEPATIC FUNCTION ABNORMAL [None]
  - BLOOD LACTATE DEHYDROGENASE INCREASED [None]
  - ALANINE AMINOTRANSFERASE INCREASED [None]
  - LYMPHOCYTE STIMULATION TEST POSITIVE [None]
  - RASH [None]
  - PRURITUS [None]
  - CEREBRAL INFARCTION [None]
